FAERS Safety Report 19319312 (Version 1)
Quarter: 2021Q2

REPORT INFORMATION
  Report Type: Spontaneous
  Country: IN (occurrence: IN)
  Receive Date: 20210527
  Receipt Date: 20210527
  Transmission Date: 20210717
  Serious: Yes (Other)
  Sender: FDA-Public Use
  Company Number: IN-AMGEN-INDSP2021078966

PATIENT
  Age: 30 Year
  Sex: Male

DRUGS (1)
  1. XGEVA [Suspect]
     Active Substance: DENOSUMAB
     Indication: BONE GIANT CELL TUMOUR
     Dosage: QMO  FOR 3 MONTHS
     Route: 058

REACTIONS (3)
  - Sexual dysfunction [Unknown]
  - Metastases to lung [Unknown]
  - Cardiac arrest [Unknown]
